FAERS Safety Report 5147986-8 (Version None)
Quarter: 2006Q4

REPORT INFORMATION
  Report Type: 
  Country: None (occurrence: None)
  Receive Date: 20061110
  Receipt Date: 20061030
  Transmission Date: 20070319
  Serious: Yes (Hospitalization)
  Sender: FDA-Public Use
  Company Number: 2006GB01960

PATIENT
  Age: 78 Year
  Sex: Female
  Weight: 98.5 kg

DRUGS (2)
  1. TAMOXIFEN CITRATE [Suspect]
     Indication: BREAST CANCER
     Route: 048
  2. ASPIRIN [Concomitant]
     Indication: ANTIPLATELET THERAPY
     Route: 048
     Dates: end: 20060803

REACTIONS (2)
  - DYSPNOEA [None]
  - PULMONARY EMBOLISM [None]
